FAERS Safety Report 7327125-5 (Version None)
Quarter: 2011Q1

REPORT INFORMATION
  Report Type: 
  Country: None (occurrence: None)
  Receive Date: 20110302
  Receipt Date: 20110216
  Transmission Date: 20110831
  Serious: Yes (Hospitalization)
  Sender: FDA-Public Use
  Company Number: US-CELGENEUS-163-21880-09100819

PATIENT
  Age: 68 Year
  Sex: Male
  Weight: 76.77 kg

DRUGS (8)
  1. COD LIVER OIL [Suspect]
     Route: 065
  2. REVLIMID [Suspect]
     Dosage: 10 MILLIGRAM
     Route: 048
     Dates: start: 20090918, end: 20091008
  3. COUMADIN [Suspect]
     Route: 065
  4. MELPHALAN [Suspect]
     Dosage: 5 MILLIGRAM/SQ. METER
     Route: 048
     Dates: start: 20090921, end: 20090924
  5. VITAMIN D [Suspect]
     Route: 065
  6. ASPIRIN [Concomitant]
     Dosage: 325 MILLIGRAM
     Route: 048
     Dates: start: 20090918
  7. PREDNISONE TAB [Suspect]
     Indication: MULTIPLE MYELOMA
     Dosage: 100 MILLIGRAM
     Route: 048
     Dates: start: 20090921, end: 20090924
  8. MAGNESIUM [Suspect]
     Route: 065

REACTIONS (3)
  - BLOOD CREATININE INCREASED [None]
  - HYPERCALCAEMIA [None]
  - INTERNATIONAL NORMALISED RATIO INCREASED [None]
